FAERS Safety Report 5606455-9 (Version None)
Quarter: 2008Q1

REPORT INFORMATION
  Report Type: 
  Country: None (occurrence: None)
  Receive Date: 20080129
  Receipt Date: 20080128
  Transmission Date: 20080703
  Serious: Yes (Other)
  Sender: FDA-Public Use
  Company Number: A0705763A

PATIENT
  Age: 58 Year
  Sex: Female
  Weight: 83.2 kg

DRUGS (7)
  1. ALLI [Suspect]
     Route: 048
     Dates: start: 20080104, end: 20080125
  2. ESTRADIOL PATCH [Concomitant]
     Indication: HORMONE REPLACEMENT THERAPY
     Dosage: 1PAT WEEKLY
     Route: 062
  3. NORETHINDRONE [Concomitant]
     Indication: HORMONE REPLACEMENT THERAPY
     Dosage: .5MG PER DAY
  4. ZOCOR [Concomitant]
  5. CENTRUM SILVER [Concomitant]
  6. STOOL SOFTENER [Concomitant]
  7. WELLBUTRIN [Concomitant]
     Route: 048

REACTIONS (4)
  - ABDOMINAL PAIN [None]
  - BACK PAIN [None]
  - MUSCLE SPASMS [None]
  - VAGINAL HAEMORRHAGE [None]
